FAERS Safety Report 25891493 (Version 1)
Quarter: 2025Q4

REPORT INFORMATION
  Report Type: Spontaneous
  Country: EU (occurrence: EU)
  Receive Date: 20251007
  Receipt Date: 20251007
  Transmission Date: 20260118
  Serious: Yes (Other)
  Sender: BIOVITRUM
  Company Number: EU-BIOVITRUM-2025-HR-013687

PATIENT
  Age: 40 Year
  Sex: Male

DRUGS (3)
  1. ANAKINRA [Suspect]
     Active Substance: ANAKINRA
     Indication: Still^s disease
  2. MESALAMINE [Suspect]
     Active Substance: MESALAMINE
     Indication: Inflammatory bowel disease
  3. MESALAMINE [Suspect]
     Active Substance: MESALAMINE
     Indication: Colitis

REACTIONS (7)
  - Septic shock [Recovering/Resolving]
  - Inflammatory bowel disease [Recovering/Resolving]
  - Colitis [Recovering/Resolving]
  - Condition aggravated [Recovering/Resolving]
  - Drug interaction [Recovering/Resolving]
  - Agranulocytosis [Recovering/Resolving]
  - Infection [Recovering/Resolving]
